FAERS Safety Report 6120510-9 (Version None)
Quarter: 2009Q1

REPORT INFORMATION
  Report Type: 
  Country: None (occurrence: None)
  Receive Date: 20090317
  Receipt Date: 20090312
  Transmission Date: 20090719
  Serious: Yes (Hospitalization)
  Sender: FDA-Public Use
  Company Number: IT-JNJFOC-20090302913

PATIENT
  Sex: Female

DRUGS (9)
  1. LEVOXACIN [Suspect]
     Indication: DRUG USE FOR UNKNOWN INDICATION
     Route: 042
  2. AMIKACIN [Suspect]
     Indication: DRUG USE FOR UNKNOWN INDICATION
     Route: 042
  3. METRONIDAZOLE [Suspect]
     Indication: STAPHYLOCOCCAL INFECTION
     Route: 042
  4. MEROPENEM [Suspect]
     Indication: STAPHYLOCOCCAL INFECTION
     Route: 042
  5. AMLODIPINE BESYLATE [Concomitant]
     Route: 065
  6. FRUSEMIDE [Concomitant]
     Route: 065
  7. OMEPRAZOLE [Concomitant]
     Route: 065
  8. ENAXOPARIN [Concomitant]
     Route: 065
  9. TEICOPLANIN [Concomitant]
     Route: 065

REACTIONS (1)
  - NEPHROTIC SYNDROME [None]
